FAERS Safety Report 5289621-4 (Version None)
Quarter: 2007Q2

REPORT INFORMATION
  Report Type: 
  Country: None (occurrence: None)
  Receive Date: 20070406
  Receipt Date: 20070404
  Transmission Date: 20071010
  Serious: Yes (Hospitalization)
  Sender: FDA-Public Use
  Company Number: GB-BRISTOL-MYERS SQUIBB COMPANY-13738232

PATIENT
  Age: 2 Hour
  Sex: Male
  Weight: 3 kg

DRUGS (4)
  1. BUSPAR [Suspect]
     Route: 064
  2. QUETIAPINE FUMARATE [Suspect]
     Route: 064
  3. FOLIC ACID [Concomitant]
     Route: 064
  4. SEROXAT [Concomitant]
     Route: 064

REACTIONS (3)
  - CONVULSION NEONATAL [None]
  - FEELING JITTERY [None]
  - HYPOCALCAEMIA [None]
